FAERS Safety Report 6469557-3 (Version None)
Quarter: 2009Q4

REPORT INFORMATION
  Report Type: 
  Country: None (occurrence: None)
  Receive Date: 20091130
  Receipt Date: 20091112
  Transmission Date: 20100525
  Serious: Yes (Other)
  Sender: FDA-Public Use
  Company Number: 1000010136

PATIENT
  Sex: Female

DRUGS (2)
  1. CITALOPRAM HYDROBROMIDE [Suspect]
     Indication: DEPRESSION
     Dates: start: 20090904, end: 20090907
  2. XANAX [Suspect]
     Dates: start: 20090903

REACTIONS (5)
  - ALANINE AMINOTRANSFERASE DECREASED [None]
  - ASPARTATE AMINOTRANSFERASE DECREASED [None]
  - GAMMA-GLUTAMYLTRANSFERASE DECREASED [None]
  - HEPATIC ENZYME INCREASED [None]
  - UROSEPSIS [None]
